FAERS Safety Report 12797659 (Version 1)
Quarter: 2016Q3

REPORT INFORMATION
  Report Type: Spontaneous
  Country: AT (occurrence: AT)
  Receive Date: 20160930
  Receipt Date: 20160930
  Transmission Date: 20161109
  Serious: Yes (Hospitalization)
  Sender: FDA-Public Use
  Company Number: AT-ROCHE-1836340

PATIENT
  Sex: Male

DRUGS (2)
  1. OXYGEN. [Concomitant]
     Active Substance: OXYGEN
  2. ESBRIET [Suspect]
     Active Substance: PIRFENIDONE
     Indication: PRODUCT USED FOR UNKNOWN INDICATION
     Dosage: 3 X 3 TABLETS
     Route: 048

REACTIONS (2)
  - Lung disorder [Recovered/Resolved]
  - Photosensitivity reaction [Recovered/Resolved]
